FAERS Safety Report 5147671-2 (Version None)
Quarter: 2006Q4

REPORT INFORMATION
  Report Type: 
  Country: None (occurrence: None)
  Receive Date: 20061106
  Receipt Date: 20061025
  Transmission Date: 20070319
  Serious: Yes (Life-Threatening, Other)
  Sender: FDA-Public Use
  Company Number: 149088ISR

PATIENT
  Age: 79 Year
  Sex: Female

DRUGS (1)
  1. TRIMETHOPRIM [Suspect]
     Indication: URINARY TRACT INFECTION
     Dosage: 400 MG (200 MG,2 IN 1 D)
     Route: 048
     Dates: start: 20060810, end: 20060812

REACTIONS (2)
  - BLOOD SODIUM DECREASED [None]
  - CONVULSION [None]
